FAERS Safety Report 10263995 (Version 2)
Quarter: 2014Q3

REPORT INFORMATION
  Report Type: Report from Study
  Country: US (occurrence: US)
  Receive Date: 20140627
  Receipt Date: 20140829
  Transmission Date: 20150326
  Serious: Yes (Hospitalization)
  Sender: FDA-Public Use
  Company Number: US-BIOGENIDEC-2014BI061416

PATIENT
  Age: 60 Year
  Sex: Female

DRUGS (3)
  1. TYSABRI [Suspect]
     Active Substance: NATALIZUMAB
     Indication: MULTIPLE SCLEROSIS
     Route: 042
     Dates: start: 20080515, end: 20140417
  2. BACLOFEN. [Concomitant]
     Active Substance: BACLOFEN
  3. AVONEX [Concomitant]
     Active Substance: INTERFERON BETA-1A
     Indication: MULTIPLE SCLEROSIS
     Route: 030
     Dates: start: 20030101

REACTIONS (13)
  - Alopecia [Unknown]
  - Skin abrasion [Unknown]
  - Bronchitis [Recovered/Resolved]
  - Cystitis [Recovered/Resolved]
  - Laceration [Unknown]
  - Upper limb fracture [Unknown]
  - Hallucination [Unknown]
  - Incoherent [Recovered/Resolved]
  - Dehydration [Unknown]
  - Fall [Recovered/Resolved]
  - Memory impairment [Unknown]
  - Contusion [Unknown]
  - Insomnia [Unknown]

NARRATIVE: CASE EVENT DATE: 201403
